FAERS Safety Report 7551457-9 (Version None)
Quarter: 2011Q2

REPORT INFORMATION
  Report Type: 
  Country: None (occurrence: None)
  Receive Date: 20110616
  Receipt Date: 20110609
  Transmission Date: 20111010
  Serious: Yes (Hospitalization)
  Sender: FDA-Public Use
  Company Number: FR-ROCHE-781805

PATIENT
  Sex: Female

DRUGS (2)
  1. XELODA [Suspect]
     Dosage: BID 14 DAYS IN 21
     Route: 048
     Dates: start: 20110111, end: 20110217
  2. HERCEPTIN [Suspect]
     Route: 042
     Dates: start: 20100901, end: 20110204

REACTIONS (1)
  - DEEP VEIN THROMBOSIS [None]
